FAERS Safety Report 6742854-X (Version None)
Quarter: 2010Q2

REPORT INFORMATION
  Report Type: 
  Country: None (occurrence: None)
  Receive Date: 20100525
  Receipt Date: 20100513
  Transmission Date: 20101027
  Serious: Yes (Other)
  Sender: FDA-Public Use
  Company Number: 2010-1497

PATIENT
  Age: 37 Year
  Sex: Female

DRUGS (5)
  1. DYSPORT [Suspect]
     Indication: SKIN WRINKLING
     Dosage: 40 UNITS (40 UNITS,SINGLE CYCLE), INTRAMUSCULAR
     Route: 030
     Dates: start: 20100412, end: 20100412
  2. BOTULINUM TOXIN TYPE A [Suspect]
  3. VICODIN [Concomitant]
  4. XANAX [Concomitant]
  5. IBUPROFEN [Concomitant]

REACTIONS (8)
  - ASTHENIA [None]
  - CHEST PAIN [None]
  - DYSPHAGIA [None]
  - INSOMNIA [None]
  - LETHARGY [None]
  - OROPHARYNGEAL PAIN [None]
  - PAIN [None]
  - UPPER RESPIRATORY TRACT INFECTION [None]
